FAERS Safety Report 19131254 (Version 2)
Quarter: 2021Q2

REPORT INFORMATION
  Report Type: Spontaneous
  Country: US (occurrence: US)
  Receive Date: 20210414
  Receipt Date: 20210422
  Transmission Date: 20210717
  Serious: No
  Sender: FDA-Public Use
  Company Number: US-GLAXOSMITHKLINE-US2021077210

PATIENT
  Age: 84 Year
  Sex: Female

DRUGS (1)
  1. FLONASE ALLERGY RELIEF [Suspect]
     Active Substance: FLUTICASONE PROPIONATE
     Indication: HYPERSENSITIVITY
     Dosage: UNK
     Dates: start: 20210406

REACTIONS (4)
  - Skin laceration [Recovering/Resolving]
  - Product complaint [Unknown]
  - Wound haemorrhage [Recovering/Resolving]
  - Product package associated injury [Recovering/Resolving]

NARRATIVE: CASE EVENT DATE: 20210406
